FAERS Safety Report 23446208 (Version 1)
Quarter: 2024Q1

REPORT INFORMATION
  Report Type: Spontaneous
  Country: US (occurrence: US)
  Receive Date: 20240126
  Receipt Date: 20240126
  Transmission Date: 20240410
  Serious: Yes (Hospitalization, Other)
  Sender: FDA-Public Use
  Company Number: US-TEVA-VS-3149387

PATIENT
  Age: 68 Year
  Sex: Female

DRUGS (1)
  1. GABAPENTIN [Suspect]
     Active Substance: GABAPENTIN
     Route: 065

REACTIONS (10)
  - Cerebral haemorrhage [Recovering/Resolving]
  - Fall [Unknown]
  - Muscle injury [Unknown]
  - Tremor [Unknown]
  - Eyelid ptosis [Unknown]
  - Muscular weakness [Unknown]
  - Seizure [Unknown]
  - Fatigue [Recovering/Resolving]
  - Head injury [Unknown]
  - Patella fracture [Unknown]

NARRATIVE: CASE EVENT DATE: 20230101
